FAERS Safety Report 9663207 (Version 1)
Quarter: 2013Q4

REPORT INFORMATION
  Report Type: Spontaneous
  Country: US (occurrence: US)
  Receive Date: 20131101
  Receipt Date: 20131101
  Transmission Date: 20140711
  Serious: Yes (Hospitalization)
  Sender: FDA-Public Use
  Company Number: US-BIOGENIDEC-2013BI103726

PATIENT
  Age: 62 Year
  Sex: Male

DRUGS (1)
  1. AVONEX [Suspect]
     Indication: MULTIPLE SCLEROSIS
     Route: 030
     Dates: start: 19980601

REACTIONS (8)
  - Accident [Recovered/Resolved]
  - Rib fracture [Recovered/Resolved]
  - Aspiration [Recovered/Resolved]
  - Traumatic renal injury [Recovered/Resolved]
  - Pneumothorax traumatic [Recovered/Resolved]
  - Multiple sclerosis [Unknown]
  - Cognitive disorder [Recovered/Resolved]
  - Injection site pain [Recovered/Resolved]
